FAERS Safety Report 6517372-4 (Version None)
Quarter: 2009Q4

REPORT INFORMATION
  Report Type: 
  Country: None (occurrence: None)
  Receive Date: 20091218
  Receipt Date: 20091207
  Transmission Date: 20100525
  Serious: Yes (Hospitalization)
  Sender: FDA-Public Use
  Company Number: 233879J09USA

PATIENT
  Age: 55 Year
  Sex: Female

DRUGS (4)
  1. REBIF [Suspect]
     Indication: MULTIPLE SCLEROSIS
     Dosage: 8.8 MCG, 3 IN 1 WEEKS, SUBCUTANEOUS, 44 MCG, 3 IN 1 WEEKS, SUBCUTANEOUS
     Route: 058
     Dates: start: 20090801, end: 20090801
  2. REBIF [Suspect]
     Indication: MULTIPLE SCLEROSIS
     Dosage: 8.8 MCG, 3 IN 1 WEEKS, SUBCUTANEOUS, 44 MCG, 3 IN 1 WEEKS, SUBCUTANEOUS
     Route: 058
     Dates: start: 20090801, end: 20090818
  3. UNSPECIFIED ANTIDIABETES MEDICATION (ALL OTHER THERAPEUTIC PRODUCTS) [Concomitant]
  4. UNSPECIFIED ANTIHYPERTENSIVES MEDICATION (ALL OTHER THERAPEUTIC PRODUC [Concomitant]

REACTIONS (4)
  - AUTOIMMUNE HEPATITIS [None]
  - BLOOD GLUCOSE INCREASED [None]
  - CHOLELITHIASIS [None]
  - HEPATIC CIRRHOSIS [None]
